FAERS Safety Report 10101642 (Version 1)
Quarter: 2014Q2

REPORT INFORMATION
  Report Type: Spontaneous
  Country: US (occurrence: None)
  Receive Date: 20140422
  Receipt Date: 20140422
  Transmission Date: 20141212
  Serious: Yes (Hospitalization)
  Sender: FDA-Public Use
  Company Number: 2014P1003159

PATIENT
  Age: 32 Year
  Sex: Male

DRUGS (9)
  1. BENZTROPINE [Suspect]
  2. CHLORPROMAZINE [Suspect]
  3. HALOPERIDOL [Suspect]
  4. VALPROATE SODIUM [Concomitant]
  5. CITALOPRAM [Concomitant]
  6. ACETAMINOPHEN [Concomitant]
  7. HYDROXYZINE [Concomitant]
  8. LEVOTHYROXINE [Concomitant]
  9. PSYLLIUM DIETARY FIBER [Concomitant]

REACTIONS (15)
  - Neuroleptic malignant syndrome [None]
  - Loss of consciousness [None]
  - Heart rate increased [None]
  - Respiratory rate increased [None]
  - Hypotension [None]
  - PO2 increased [None]
  - Blood glucose increased [None]
  - Blood lactic acid decreased [None]
  - Myoglobin urine present [None]
  - Blood pH decreased [None]
  - PCO2 decreased [None]
  - Blood bicarbonate decreased [None]
  - Blood magnesium decreased [None]
  - Tachycardia [None]
  - Communication disorder [None]
